FAERS Safety Report 19141210 (Version 1)
Quarter: 2021Q2

REPORT INFORMATION
  Report Type: Spontaneous
  Country: US (occurrence: US)
  Receive Date: 20210415
  Receipt Date: 20210415
  Transmission Date: 20210717
  Serious: No
  Sender: FDA-Public Use
  Company Number: US-SA-2021SA121872

PATIENT
  Sex: Female

DRUGS (3)
  1. AUBAGIO [Suspect]
     Active Substance: TERIFLUNOMIDE
     Indication: MULTIPLE SCLEROSIS
     Dosage: 14 MG, QD
     Route: 048
     Dates: start: 20181026
  2. VITAMIN D NOS [Concomitant]
     Active Substance: VITAMIN D NOS
  3. ATORVASTATIN [Interacting]
     Active Substance: ATORVASTATIN

REACTIONS (2)
  - Drug interaction [Unknown]
  - Alopecia [Unknown]
